FAERS Safety Report 17747105 (Version 6)
Quarter: 2020Q3

REPORT INFORMATION
  Report Type: Report from Study
  Country: US (occurrence: US)
  Receive Date: 20200505
  Receipt Date: 20200709
  Transmission Date: 20201102
  Serious: Yes (Hospitalization)
  Sender: FDA-Public Use
  Company Number: NVSC2020US120270

PATIENT
  Sex: Female
  Weight: 72.56 kg

DRUGS (7)
  1. TREPROSTINIL. [Suspect]
     Active Substance: TREPROSTINIL
     Dosage: 25 NG/KG/ML
     Route: 042
     Dates: start: 20200430
  2. TREPROSTINIL. [Suspect]
     Active Substance: TREPROSTINIL
     Indication: PULMONARY ARTERIAL HYPERTENSION
     Dosage: UNK
     Route: 042
  3. TREPROSTINIL. [Suspect]
     Active Substance: TREPROSTINIL
     Dosage: CONTINOUS(11 NG/KG/MIN)
     Route: 042
  4. TADALAFIL. [Concomitant]
     Active Substance: TADALAFIL
     Indication: PRODUCT USED FOR UNKNOWN INDICATION
     Dosage: UNK
     Route: 065
  5. TREPROSTINIL. [Suspect]
     Active Substance: TREPROSTINIL
     Dosage: UNK(10 NG/KG/MIN)
     Route: 041
  6. TREPROSTINIL. [Suspect]
     Active Substance: TREPROSTINIL
     Dosage: 7 NG/KG/MIN, CONTINUOUS
     Route: 042
     Dates: start: 20200430
  7. ELIQUIS [Concomitant]
     Active Substance: APIXABAN
     Indication: PRODUCT USED FOR UNKNOWN INDICATION
     Dosage: UNK
     Route: 065

REACTIONS (14)
  - Papule [Unknown]
  - Diarrhoea [Unknown]
  - Erythema [Unknown]
  - Flushing [Unknown]
  - Rash [Unknown]
  - Neck pain [Unknown]
  - Headache [Unknown]
  - Blister [Unknown]
  - Rash pruritic [Unknown]
  - Swelling [Unknown]
  - Fatigue [Unknown]
  - Pruritus [Unknown]
  - Dysgeusia [Unknown]
  - Urticaria [Unknown]
